FAERS Safety Report 7076277-3 (Version None)
Quarter: 2010Q4

REPORT INFORMATION
  Report Type: 
  Country: None (occurrence: None)
  Receive Date: 20101101
  Receipt Date: 20101018
  Transmission Date: 20110411
  Serious: Yes (Disabling)
  Sender: FDA-Public Use
  Company Number: GB-RANBAXY-2010R1-38985

PATIENT

DRUGS (2)
  1. MADOPAR 250 COMPRIMATE [Suspect]
     Indication: PARKINSON'S DISEASE
     Dosage: 125 MG, 5/1 DAYS
     Route: 048
     Dates: start: 20080101
  2. PRAMIPEXOLE [Suspect]
     Indication: PARKINSON'S DISEASE
     Dosage: 1.25 MG, TID
     Route: 048
     Dates: start: 20080101

REACTIONS (2)
  - EXCESSIVE MASTURBATION [None]
  - HYPERSEXUALITY [None]
